FAERS Safety Report 8988372 (Version 1)
Quarter: 2012Q4

REPORT INFORMATION
  Report Type: Spontaneous
  Country: US (occurrence: None)
  Receive Date: 20121220
  Receipt Date: 20121220
  Transmission Date: 20130627
  Serious: Yes (Other)
  Sender: FDA-Public Use
  Company Number: None

PATIENT
  Age: 46 Year
  Sex: Female
  Weight: 88.45 kg

DRUGS (1)
  1. TRAMADOL [Suspect]
     Indication: BACK PAIN

REACTIONS (3)
  - Pruritus [None]
  - Rash [None]
  - Skin burning sensation [None]
